FAERS Safety Report 8421457-5 (Version None)
Quarter: 2012Q2

REPORT INFORMATION
  Report Type: 
  Country: None (occurrence: None)
  Receive Date: 20120608
  Receipt Date: 20120606
  Transmission Date: 20120825
  Serious: Yes (Hospitalization)
  Sender: FDA-Public Use
  Company Number: PHEH2012US011450

PATIENT
  Sex: Female

DRUGS (1)
  1. ZOMETA [Suspect]
     Indication: BREAST CANCER
     Route: 042
     Dates: start: 20101110

REACTIONS (4)
  - BLOOD DISORDER [None]
  - BLOOD TEST ABNORMAL [None]
  - ASTHENIA [None]
  - DYSPNOEA [None]
